FAERS Safety Report 19189957 (Version 5)
Quarter: 2021Q3

REPORT INFORMATION
  Report Type: Spontaneous
  Country: DE (occurrence: DE)
  Receive Date: 20210428
  Receipt Date: 20210907
  Transmission Date: 20211014
  Serious: Yes (Other)
  Sender: FDA-Public Use
  Company Number: DE-AUROBINDO-AUR-APL-2021-017215

PATIENT
  Age: 77 Year
  Sex: Female
  Weight: 66 kg

DRUGS (40)
  1. FOLINIC ACID [Suspect]
     Active Substance: LEUCOVORIN
     Indication: COLORECTAL CANCER METASTATIC
     Dosage: 680 MILLIGRAM
     Route: 065
     Dates: start: 20200902
  2. OXALIPLATIN. [Suspect]
     Active Substance: OXALIPLATIN
     Indication: COLORECTAL CANCER METASTATIC
     Dosage: 144 MILLIGRAM
     Route: 065
     Dates: start: 20200916
  3. BRICANYL [Concomitant]
     Active Substance: TERBUTALINE SULFATE
     Indication: BRONCHOSPASM
     Dosage: 0.5 MILLIGRAM, ONCE A DAY
     Route: 058
     Dates: start: 20201028, end: 20201028
  4. MINERALS NOS;VITAMINS NOS [Concomitant]
     Active Substance: MINERALS\VITAMINS
     Indication: WEIGHT DECREASED
     Dosage: 125 MILLILITER  PRN (AS NEEDED)
     Route: 048
     Dates: start: 20210120
  5. VERGENTAN [Concomitant]
     Active Substance: ALIZAPRIDE HYDROCHLORIDE
     Indication: NAUSEA
     Dosage: 50 MILLIGRAM PRN (AS NEEDED)
     Route: 048
     Dates: start: 20200910
  6. FOLINIC ACID [Suspect]
     Active Substance: LEUCOVORIN
     Dosage: 640 MILLIGRAM
     Route: 065
     Dates: start: 20210324
  7. IRINOTECAN [Suspect]
     Active Substance: IRINOTECAN
     Indication: COLORECTAL CANCER METASTATIC
     Dosage: 300 MILLIGRAM, CYCLICAL
     Route: 042
     Dates: start: 20201209, end: 20210301
  8. OXALIPLATIN. [Suspect]
     Active Substance: OXALIPLATIN
     Dosage: 115 MILLIGRAM
     Route: 065
     Dates: start: 20200902
  9. FLUOROURACIL. [Suspect]
     Active Substance: FLUOROURACIL
     Indication: COLORECTAL CANCER METASTATIC
     Dosage: 4080 MILLIGRAM
     Route: 042
     Dates: start: 20200902
  10. AKYNZEO [Concomitant]
     Active Substance: NETUPITANT\PALONOSETRON HYDROCHLORIDE
     Indication: COLORECTAL CANCER METASTATIC
     Dosage: 300 MILLIGRAM, CYCLICAL
     Route: 048
     Dates: start: 20200902
  11. MINOCYCLINE [Concomitant]
     Active Substance: MINOCYCLINE HYDROCHLORIDE
     Indication: PROPHYLAXIS
     Dosage: 100 MILLIGRAM, ONCE A DAY(50 MILLIGRAM, BID )
     Route: 048
     Dates: start: 20200902
  12. NOVAMIN [Concomitant]
     Indication: PAIN
     Dosage: 2000 MILLIGRAM, ONCE A DAY
     Route: 048
     Dates: start: 2020
  13. ONDANSETRON [Concomitant]
     Active Substance: ONDANSETRON
     Indication: NAUSEA
     Dosage: 8 MILLIGRAM, ONCE A DAY
     Route: 042
     Dates: start: 20201111, end: 20201111
  14. SIMVASTATIN. [Concomitant]
     Active Substance: SIMVASTATIN
     Indication: METABOLIC DISORDER
     Dosage: 20 MILLIGRAM, ONCE A DAY
     Route: 048
  15. IRINOTECAN [Suspect]
     Active Substance: IRINOTECAN
     Dosage: 288 MILLIGRAM
     Route: 042
     Dates: start: 20210324
  16. VECTIBIX [Suspect]
     Active Substance: PANITUMUMAB
     Indication: COLORECTAL CANCER METASTATIC
     Dosage: 400 MILLIGRAM
     Route: 042
     Dates: start: 20200902
  17. ALPHA LIPON [Concomitant]
     Indication: TREMOR
     Dosage: 600 MILLIGRAM
     Route: 048
     Dates: start: 20210210
  18. FOLIC ACID. [Concomitant]
     Active Substance: FOLIC ACID
     Indication: PRODUCT USED FOR UNKNOWN INDICATION
     Dosage: UNK
     Route: 065
     Dates: start: 20200708
  19. PREDNISOLON [Concomitant]
     Active Substance: PREDNISOLONE
     Indication: BRONCHOSPASM
     Dosage: 200 MILLIGRAM, ONCE A DAY
     Route: 042
     Dates: start: 20201028, end: 20201028
  20. AMLODIPINE [Concomitant]
     Active Substance: AMLODIPINE BESYLATE
     Indication: HYPERTENSION
     Dosage: 2.5 MILLIGRAM, ONCE A DAY
     Route: 048
     Dates: start: 2020, end: 20210118
  21. CALCIGEN D3 [Concomitant]
     Indication: HYPOCALCAEMIA
     Dosage: 2500 MILLIGRAM, ONCE A DAY(1250 MILLIGRAM, BID )
     Route: 048
     Dates: start: 20201123
  22. ERYTHROZYTEN KONZENTRAT [Concomitant]
     Active Substance: HUMAN RED BLOOD CELL
     Indication: ANAEMIA
     Dosage: 300 MILLILITER, ONCE A DAY
     Route: 042
     Dates: start: 20210118, end: 20210118
  23. MCP [Concomitant]
     Active Substance: METOCLOPRAMIDE HYDROCHLORIDE
     Indication: NAUSEA
     Dosage: 10 MILLIGRAM PRN (AS NEEDED)
     Route: 048
     Dates: start: 20200902
  24. VECTIBIX [Suspect]
     Active Substance: PANITUMUMAB
     Dosage: 360 MILLIGRAM
     Route: 042
     Dates: start: 20210324
  25. AMPICILLIN SODIUM;SULBACTAM SODIUM [Concomitant]
     Active Substance: AMPICILLIN SODIUM\SULBACTAM SODIUM
     Indication: INFECTION
     Dosage: 3 GRAM, ONCE A DAY
     Route: 048
     Dates: start: 20210113, end: 20210115
  26. CEFPODOXIME [Concomitant]
     Active Substance: CEFPODOXIME
     Indication: C-REACTIVE PROTEIN INCREASED
     Dosage: 200 MILLIGRAM, ONCE A DAY
     Route: 048
     Dates: start: 20201112, end: 20201117
  27. DEXAMETHASONE. [Concomitant]
     Active Substance: DEXAMETHASONE
     Indication: COLORECTAL CANCER METASTATIC
     Dosage: 8 MILLIGRAM, CYCLICAL
     Route: 042
     Dates: start: 20200902
  28. FOLSAURE SANAVITA [Concomitant]
     Indication: FOLATE DEFICIENCY
     Dosage: 5 MILLIGRAM, ONCE A DAY
     Route: 048
     Dates: start: 20200708
  29. LAXOBERAL [Concomitant]
     Active Substance: SODIUM PICOSULFATE
     Indication: CONSTIPATION
     Dosage: 15 DROP PRN (AS NEEDED)
     Route: 048
     Dates: start: 20210120
  30. MAGNETRANS FORTE [Concomitant]
     Active Substance: MAGNESIUM OXIDE
     Indication: HYPOMAGNESAEMIA
     Dosage: 300 MILLIGRAM, ONCE A DAY(150 MILLIGRAM, BID )
     Route: 048
     Dates: start: 20201118
  31. PANTOZOL [Concomitant]
     Active Substance: PANTOPRAZOLE SODIUM
     Indication: CHRONIC GASTRITIS
     Dosage: 40 MILLIGRAM, ONCE A DAY
     Route: 048
     Dates: start: 20200910
  32. POTASSIUM [Concomitant]
     Active Substance: POTASSIUM
     Indication: HYPOKALAEMIA
     Dosage: 9999 UNK
     Route: 065
     Dates: start: 20210113, end: 20210118
  33. RIOPAN [Concomitant]
     Indication: ABDOMINAL PAIN UPPER
     Dosage: 10 MILLILITERPRN (AS NEEDED)
     Route: 048
     Dates: start: 20201014
  34. FLUOROURACIL. [Suspect]
     Active Substance: FLUOROURACIL
     Dosage: 3840 MILLIGRAM
     Route: 042
     Dates: start: 20210324
  35. CALCIUM [Concomitant]
     Active Substance: CALCIUM
     Indication: HYPOCALCAEMIA
     Dosage: 1000 MILLIGRAM, ONCE A DAY
     Route: 048
     Dates: start: 20201118
  36. LOPERAMID [Concomitant]
     Active Substance: LOPERAMIDE
     Indication: DIARRHOEA
     Dosage: 1.86 MILLIGRAM PRN (AS NEEDED)
     Route: 048
     Dates: start: 20200903
  37. METOPROLOL. [Concomitant]
     Active Substance: METOPROLOL
     Indication: HYPERTENSION
     Dosage: 50 MILLIGRAM, ONCE A DAY
     Route: 048
     Dates: start: 2020
  38. ATROPINE. [Concomitant]
     Active Substance: ATROPINE
     Indication: COLORECTAL CANCER METASTATIC
     Dosage: 0.25 MILLIGRAM, CYCLICAL
     Route: 058
     Dates: start: 20201209
  39. POTASSIUM [Concomitant]
     Active Substance: POTASSIUM
     Indication: HYPOKALAEMIA
     Dosage: 20 MILLILITER PRN (AS NEEDED)
     Route: 042
     Dates: start: 20201112, end: 20201118
  40. STANGYL [Concomitant]
     Active Substance: TRIMIPRAMINE MALEATE
     Indication: DEPRESSION
     Dosage: 100 MILLIGRAM, ONCE A DAY(50 MILLIGRAM, BID )
     Route: 048

REACTIONS (1)
  - Hypokalaemia [Not Recovered/Not Resolved]

NARRATIVE: CASE EVENT DATE: 20210310
